FAERS Safety Report 6402759-0 (Version None)
Quarter: 2009Q4

REPORT INFORMATION
  Report Type: 
  Country: None (occurrence: None)
  Receive Date: 20091016
  Receipt Date: 20091007
  Transmission Date: 20100525
  Serious: Yes (Other)
  Sender: FDA-Public Use
  Company Number: GB-RANBAXY-2009RR-28515

PATIENT
  Sex: Female

DRUGS (2)
  1. ISOTRETINOIN [Suspect]
     Dosage: 60 MG, UNK
  2. ISOTRETINOIN [Suspect]
     Dosage: 40 MG, UNK

REACTIONS (5)
  - BACK PAIN [None]
  - DYSPNOEA [None]
  - HEADACHE [None]
  - VISION BLURRED [None]
  - VOMITING [None]
